FAERS Safety Report 4820235-3 (Version None)
Quarter: 2005Q4

REPORT INFORMATION
  Report Type: 
  Country: None (occurrence: None)
  Receive Date: 20051011
  Receipt Date: 20050411
  Transmission Date: 20060501
  Serious: Yes (Death, Life-Threatening, Hospitalization, Other)
  Sender: FDA-Public Use
  Company Number: US-JNJFOC-20050206001

PATIENT
  Age: 66 Year
  Sex: Male
  Weight: 102 kg

DRUGS (10)
  1. RETEVASE [Suspect]
     Indication: ISCHAEMIC STROKE
     Dosage: 10 IU, 2 IN 1 TOTAL, INTRAVENOUS
     Route: 042
     Dates: start: 20050219, end: 20050219
  2. METOPROLOL TARTRATE [Concomitant]
  3. STARLIX [Concomitant]
  4. DIGOXIN [Concomitant]
  5. FUROSEMIDE [Concomitant]
  6. GLIPIZIDE [Concomitant]
  7. LIPITOR [Concomitant]
  8. LISINOPRIL [Concomitant]
  9. ISOSORBIDE (ISOSORBIDE) [Concomitant]
  10. ENTERIC COATED ASA (ACETYLSALICYLIC ACID) [Concomitant]

REACTIONS (1)
  - HAEMORRHAGE INTRACRANIAL [None]
